FAERS Safety Report 11966012 (Version 1)
Quarter: 2016Q1

REPORT INFORMATION
  Report Type: Spontaneous
  Country: None (occurrence: None)
  Receive Date: 20160125
  Receipt Date: 20160125
  Transmission Date: 20160526
  Serious: No
  Sender: FDA-Public Use
  Company Number: None

PATIENT
  Age: 42 Year
  Sex: Female

DRUGS (2)
  1. CEFDINIR. [Suspect]
     Active Substance: CEFDINIR
     Indication: PNEUMONIA
     Dosage: TAKE 1 + 2XS / DAY
     Route: 048
  2. CEFDINIR. [Suspect]
     Active Substance: CEFDINIR
     Indication: SINUSITIS
     Dosage: TAKE 1 + 2XS / DAY
     Route: 048

REACTIONS (8)
  - Epistaxis [None]
  - Diarrhoea [None]
  - Ear haemorrhage [None]
  - Neck pain [None]
  - Insomnia [None]
  - Headache [None]
  - Ear infection [None]
  - Tinnitus [None]

NARRATIVE: CASE EVENT DATE: 20160123
